FAERS Safety Report 5802078-7 (Version None)
Quarter: 2008Q3

REPORT INFORMATION
  Report Type: 
  Country: None (occurrence: None)
  Receive Date: 20080707
  Receipt Date: 20080625
  Transmission Date: 20090109
  Serious: No
  Sender: FDA-Public Use
  Company Number: PHEH2008US05254

PATIENT
  Sex: Female

DRUGS (2)
  1. ZOMETA [Suspect]
     Indication: BREAST CANCER
     Dosage: 4 MG, QMO
     Dates: start: 20051001
  2. ZOMETA [Suspect]
     Indication: METASTASES TO BONE

REACTIONS (2)
  - BLOOD CALCIUM INCREASED [None]
  - BLOOD PHOSPHORUS INCREASED [None]
